FAERS Safety Report 14615463 (Version 13)
Quarter: 2019Q3

REPORT INFORMATION
  Report Type: Report from Study
  Country: None (occurrence: NL)
  Receive Date: 20180308
  Receipt Date: 20190815
  Transmission Date: 20191004
  Serious: Yes (Disabling, Other)
  Sender: FDA-Public Use
  Company Number: NL-ABBVIE-16K-114-1810458-00

PATIENT
  Age: 75 Year
  Sex: Female
  Weight: 73 kg

DRUGS (14)
  1. DUODOPA [Suspect]
     Active Substance: CARBIDOPA\LEVODOPA
     Dosage: MORNING DOSE: 14.0, CONTINUOUS DOSE: 3.0, EXTRA DOSE: 2.5
     Route: 050
     Dates: start: 20161206, end: 20161214
  2. DUODOPA [Suspect]
     Active Substance: CARBIDOPA\LEVODOPA
     Dosage: MORNING DOSE: 11.5 ML CONTINUOUS DOSE 2.9 ML EXTRA DOSE 2.5 ML
     Route: 050
     Dates: start: 20161214, end: 201612
  3. DUODOPA [Suspect]
     Active Substance: CARBIDOPA\LEVODOPA
     Dosage: MD: 8.5, CD: 2.6, ED: 2.5
     Route: 050
  4. NAPROXEN. [Concomitant]
     Active Substance: NAPROXEN
     Indication: MUSCLE STRAIN
  5. DUODOPA [Suspect]
     Active Substance: CARBIDOPA\LEVODOPA
     Dosage: CD 0.1 ML/ TO 2.6 ML/HR
     Route: 050
  6. DUODOPA [Suspect]
     Active Substance: CARBIDOPA\LEVODOPA
     Dosage: CD 3.0
     Route: 050
  7. DUODOPA [Suspect]
     Active Substance: CARBIDOPA\LEVODOPA
     Indication: PARKINSON^S DISEASE
     Dosage: MD: 14.0, CD 3.8, ED: 2.5
     Route: 050
     Dates: start: 20161128, end: 20161205
  8. DUODOPA [Suspect]
     Active Substance: CARBIDOPA\LEVODOPA
     Dosage: MD: 8.5ML, CD:2.8, ED:2.5
     Route: 050
  9. CORTISONE [Concomitant]
     Active Substance: CORTISONE
     Indication: PRODUCT USED FOR UNKNOWN INDICATION
  10. DUODOPA [Suspect]
     Active Substance: CARBIDOPA\LEVODOPA
     Dosage: MD: 14.0, CD: 3.6, ED: 2.5
     Route: 050
     Dates: start: 20161205, end: 20161206
  11. DUODOPA [Suspect]
     Active Substance: CARBIDOPA\LEVODOPA
     Dosage: MORNING DOSE: 10.5
     Route: 050
     Dates: start: 201612, end: 201701
  12. DUODOPA [Suspect]
     Active Substance: CARBIDOPA\LEVODOPA
     Dosage: MORNING DOSE: 8.5
     Route: 050
     Dates: start: 201701, end: 2017
  13. DUODOPA [Suspect]
     Active Substance: CARBIDOPA\LEVODOPA
     Dosage: CD DECREASED WITH 0.1ML
     Route: 050
     Dates: start: 2017
  14. REQUIP [Concomitant]
     Active Substance: ROPINIROLE HYDROCHLORIDE
     Indication: PRODUCT USED FOR UNKNOWN INDICATION

REACTIONS (69)
  - Impaired driving ability [Not Recovered/Not Resolved]
  - Lymphoedema [Recovering/Resolving]
  - Initial insomnia [Recovered/Resolved]
  - Osteoarthritis [Not Recovered/Not Resolved]
  - Arthralgia [Recovered/Resolved]
  - Fatigue [Not Recovered/Not Resolved]
  - Family stress [Not Recovered/Not Resolved]
  - Neuralgia [Recovered/Resolved]
  - Therapeutic product effect variable [Not Recovered/Not Resolved]
  - Fibroma [Not Recovered/Not Resolved]
  - Abnormal faeces [Recovered/Resolved]
  - Balance disorder [Not Recovered/Not Resolved]
  - Tension [Recovered/Resolved]
  - Muscle strain [Not Recovered/Not Resolved]
  - Stoma site discharge [Recovered/Resolved]
  - Abnormal dreams [Recovered/Resolved]
  - Stoma site extravasation [Not Recovered/Not Resolved]
  - Stoma site irritation [Not Recovered/Not Resolved]
  - Stoma site inflammation [Recovered/Resolved]
  - Varicose vein [Not Recovered/Not Resolved]
  - Grip strength decreased [Not Recovered/Not Resolved]
  - Parkinsonian gait [Not Recovered/Not Resolved]
  - Stoma site erythema [Recovered/Resolved]
  - Stoma site discharge [Recovered/Resolved]
  - Weight decreased [Recovered/Resolved]
  - Stoma site irritation [Recovered/Resolved]
  - Pain [Not Recovered/Not Resolved]
  - General physical health deterioration [Not Recovered/Not Resolved]
  - Stoma site pain [Recovered/Resolved]
  - Polyneuropathy [Not Recovered/Not Resolved]
  - Bradykinesia [Not Recovered/Not Resolved]
  - On and off phenomenon [Recovered/Resolved]
  - Physical disability [Not Recovered/Not Resolved]
  - Fibroma [Not Recovered/Not Resolved]
  - Stress [Not Recovered/Not Resolved]
  - Initial insomnia [Not Recovered/Not Resolved]
  - Therapeutic response shortened [Not Recovered/Not Resolved]
  - Fall [Not Recovered/Not Resolved]
  - Stoma site erythema [Recovered/Resolved]
  - Insomnia [Not Recovered/Not Resolved]
  - Loss of dreaming [Not Recovered/Not Resolved]
  - Frequent bowel movements [Not Recovered/Not Resolved]
  - Pollakiuria [Not Recovered/Not Resolved]
  - Decreased activity [Not Recovered/Not Resolved]
  - Fall [Recovered/Resolved]
  - Gait disturbance [Not Recovered/Not Resolved]
  - Dyskinesia [Not Recovered/Not Resolved]
  - Freezing phenomenon [Not Recovered/Not Resolved]
  - Pollakiuria [Unknown]
  - Anaemia [Not Recovered/Not Resolved]
  - Device issue [Unknown]
  - Fine motor skill dysfunction [Not Recovered/Not Resolved]
  - Pain in extremity [Not Recovered/Not Resolved]
  - Iron deficiency [Not Recovered/Not Resolved]
  - Back disorder [Not Recovered/Not Resolved]
  - Osteoarthritis [Not Recovered/Not Resolved]
  - Diarrhoea [Not Recovered/Not Resolved]
  - Unevaluable event [Recovering/Resolving]
  - Mobility decreased [Not Recovered/Not Resolved]
  - Muscle rigidity [Not Recovered/Not Resolved]
  - Limb deformity [Not Recovered/Not Resolved]
  - Myalgia [Not Recovered/Not Resolved]
  - Bowel movement irregularity [Recovered/Resolved]
  - Osteoarthritis [Recovered/Resolved]
  - Neuralgia [Not Recovered/Not Resolved]
  - Wrist fracture [Not Recovered/Not Resolved]
  - Diarrhoea [Recovered/Resolved]
  - Asthenia [Not Recovered/Not Resolved]
  - Stoma site discharge [Not Recovered/Not Resolved]

NARRATIVE: CASE EVENT DATE: 2016
